FAERS Safety Report 18779406 (Version 48)
Quarter: 2022Q3

REPORT INFORMATION
  Report Type: Other
  Country: GB (occurrence: GB)
  Receive Date: 20210125
  Receipt Date: 20220913
  Transmission Date: 20221026
  Serious: Yes (Other)
  Sender: FDA-Public Use
  Company Number: GB-002147023-NVSC2020GB311501

PATIENT

DRUGS (40)
  1. GABAPENTIN [Suspect]
     Active Substance: GABAPENTIN
     Indication: Product used for unknown indication
     Dosage: UNK
     Route: 048
  2. GABAPENTIN [Suspect]
     Active Substance: GABAPENTIN
     Dosage: UNK
     Route: 048
  3. GABAPENTIN [Suspect]
     Active Substance: GABAPENTIN
     Dosage: UNK
     Route: 048
  4. BACLOFEN [Suspect]
     Active Substance: BACLOFEN
     Indication: Product used for unknown indication
     Dosage: UNK
     Route: 048
  5. BACLOFEN [Suspect]
     Active Substance: BACLOFEN
     Dosage: UNK
     Route: 048
  6. BOTOX [Suspect]
     Active Substance: ONABOTULINUMTOXINA
     Indication: Muscle spasticity
     Dosage: UNK UNK, SINGLE
     Route: 065
     Dates: start: 20190307, end: 20190307
  7. BOTOX [Suspect]
     Active Substance: ONABOTULINUMTOXINA
     Indication: Muscle spasticity
     Dosage: UNK UNK, SINGLE
     Route: 065
  8. BOTOX [Suspect]
     Active Substance: ONABOTULINUMTOXINA
     Dosage: 1 DOSAGE FORM, OD
     Route: 065
     Dates: start: 20190307, end: 20190307
  9. BOTOX [Suspect]
     Active Substance: ONABOTULINUMTOXINA
     Dosage: UNK UNK, OD
     Route: 065
     Dates: start: 20190307, end: 20190307
  10. BOTOX [Suspect]
     Active Substance: ONABOTULINUMTOXINA
     Dosage: 1 DOSAGE FORM, OD
     Route: 065
  11. BOTOX [Suspect]
     Active Substance: ONABOTULINUMTOXINA
     Dosage: UNK UNK, 1 TOTAL
     Route: 065
     Dates: start: 20190307, end: 20190307
  12. BOTOX [Suspect]
     Active Substance: ONABOTULINUMTOXINA
     Dosage: 1 DOSAGE FORM, SINGLE  IN TOTAL
     Route: 065
     Dates: start: 20190307, end: 20190307
  13. BOTOX [Suspect]
     Active Substance: ONABOTULINUMTOXINA
     Dosage: UNK
     Route: 065
  14. FLUCLOXACILLIN [Suspect]
     Active Substance: FLUCLOXACILLIN
     Indication: Vascular device infection
     Dosage: 2 GRAM, QID (QDS)
     Route: 065
  15. FLUCLOXACILLIN [Suspect]
     Active Substance: FLUCLOXACILLIN
     Dosage: 2 GRAM, QD (ONCE A DAY) (8 GRAM DAILY)
     Route: 065
  16. FLUCLOXACILLIN [Suspect]
     Active Substance: FLUCLOXACILLIN
     Dosage: 2 GRAM, QD
     Route: 065
  17. FLUCLOXACILLIN [Suspect]
     Active Substance: FLUCLOXACILLIN
     Dosage: 8 GRAM, QD (8 GRAM, ONCE A DAY(2 GRAM, QID (QDS)
     Route: 065
  18. LAMICTAL [Concomitant]
     Active Substance: LAMOTRIGINE
     Indication: Ill-defined disorder
     Dosage: UNK
     Route: 065
  19. LAMICTAL [Concomitant]
     Active Substance: LAMOTRIGINE
     Dosage: UNK
     Route: 065
  20. LAMICTAL [Concomitant]
     Active Substance: LAMOTRIGINE
     Dosage: UNK
     Route: 065
  21. LAMICTAL [Concomitant]
     Active Substance: LAMOTRIGINE
     Dosage: UNK
     Route: 065
  22. DULOXETINE HYDROCHLORIDE [Concomitant]
     Active Substance: DULOXETINE HYDROCHLORIDE
     Indication: Ill-defined disorder
     Dosage: UNK
     Route: 065
  23. DULOXETINE HYDROCHLORIDE [Concomitant]
     Active Substance: DULOXETINE HYDROCHLORIDE
     Dosage: UNK
     Route: 016
  24. DULOXETINE HYDROCHLORIDE [Concomitant]
     Active Substance: DULOXETINE HYDROCHLORIDE
     Dosage: UNK
     Route: 016
  25. OMEPRAZOLE SODIUM [Concomitant]
     Active Substance: OMEPRAZOLE SODIUM
     Indication: Ill-defined disorder
     Dosage: UNK
     Route: 065
  26. OMEPRAZOLE SODIUM [Concomitant]
     Active Substance: OMEPRAZOLE SODIUM
     Dosage: UNK
     Route: 048
  27. FLUCONAZOLE [Concomitant]
     Active Substance: FLUCONAZOLE
     Indication: Ill-defined disorder
     Dosage: UNK
     Route: 065
  28. FLUCONAZOLE [Concomitant]
     Active Substance: FLUCONAZOLE
     Dosage: UNK
     Route: 048
  29. PEGFILGRASTIM [Concomitant]
     Active Substance: PEGFILGRASTIM
     Indication: Ill-defined disorder
     Dosage: UNK
     Route: 065
  30. PEGFILGRASTIM [Concomitant]
     Active Substance: PEGFILGRASTIM
     Dosage: UNK
     Route: 065
  31. PEGFILGRASTIM [Concomitant]
     Active Substance: PEGFILGRASTIM
     Dosage: UNK
     Route: 065
  32. PEGFILGRASTIM [Concomitant]
     Active Substance: PEGFILGRASTIM
     Dosage: UNK
     Route: 065
  33. ALLOPURINOL [Concomitant]
     Active Substance: ALLOPURINOL
     Indication: Ill-defined disorder
     Dosage: UNK
     Route: 065
  34. ALLOPURINOL [Concomitant]
     Active Substance: ALLOPURINOL
     Dosage: UNK
     Route: 065
  35. GABAPENTIN [Concomitant]
     Active Substance: GABAPENTIN
     Indication: Ill-defined disorder
     Dosage: UNK
     Route: 048
  36. GABAPENTIN [Concomitant]
     Active Substance: GABAPENTIN
     Dosage: UNK
     Route: 065
  37. PROPRANOLOL HYDROCHLORIDE [Concomitant]
     Active Substance: PROPRANOLOL HYDROCHLORIDE
     Indication: Ill-defined disorder
     Dosage: UNK
     Route: 065
  38. PROPRANOLOL HYDROCHLORIDE [Concomitant]
     Active Substance: PROPRANOLOL HYDROCHLORIDE
     Dosage: UNK
     Route: 065
  39. ENOXAPARIN SODIUM [Concomitant]
     Active Substance: ENOXAPARIN SODIUM
     Indication: Ill-defined disorder
     Dosage: UNK
     Route: 065
  40. ENOXAPARIN SODIUM [Concomitant]
     Active Substance: ENOXAPARIN SODIUM
     Dosage: UNK
     Route: 065

REACTIONS (5)
  - Muscle spasms [Unknown]
  - Injection site pain [Unknown]
  - Epilepsy [Recovered/Resolved]
  - Somnolence [Unknown]
  - Partial seizures [Unknown]
